FAERS Safety Report 9428877 (Version 1)
Quarter: 2013Q3

REPORT INFORMATION
  Report Type: Report from Study
  Country: US (occurrence: US)
  Receive Date: 20130730
  Receipt Date: 20130730
  Transmission Date: 20140515
  Serious: No
  Sender: FDA-Public Use
  Company Number: US-ABBOTT-12P-163-1010040-00

PATIENT
  Sex: Female

DRUGS (1)
  1. NIASPAN (COATED) [Suspect]
     Indication: PRODUCT USED FOR UNKNOWN INDICATION
     Route: 048
     Dates: start: 201210

REACTIONS (5)
  - Faeces pale [Unknown]
  - Nausea [Unknown]
  - Flushing [Recovered/Resolved]
  - Rash macular [Not Recovered/Not Resolved]
  - Decreased appetite [Unknown]
